FAERS Safety Report 7343647-5 (Version None)
Quarter: 2011Q1

REPORT INFORMATION
  Report Type: 
  Country: None (occurrence: None)
  Receive Date: 20110310
  Receipt Date: 20100901
  Transmission Date: 20110831
  Serious: No
  Sender: FDA-Public Use
  Company Number: A0878915A

PATIENT
  Age: 67 Year
  Sex: Female

DRUGS (1)
  1. NICORETTE [Suspect]
     Dates: start: 20100801

REACTIONS (4)
  - NICOTINE DEPENDENCE [None]
  - GASTROOESOPHAGEAL REFLUX DISEASE [None]
  - CONDITION AGGRAVATED [None]
  - DYSPEPSIA [None]
